FAERS Safety Report 19866977 (Version 1)
Quarter: 2021Q3

REPORT INFORMATION
  Report Type: Spontaneous
  Country: GB (occurrence: GB)
  Receive Date: 20210922
  Receipt Date: 20210922
  Transmission Date: 20211014
  Serious: Yes (Other)
  Sender: FDA-Public Use
  Company Number: GB-STRIDES ARCOLAB LIMITED-2021SP027913

PATIENT
  Age: 65 Year
  Sex: Female

DRUGS (4)
  1. METHYLPREDNISOLONE. [Suspect]
     Active Substance: METHYLPREDNISOLONE
     Indication: HAEMOPHAGOCYTIC LYMPHOHISTIOCYTOSIS
     Dosage: 15 MILLIGRAM/KILOGRAM, QD
     Route: 042
  2. MYCOPHENOLIC ACID. [Concomitant]
     Active Substance: MYCOPHENOLIC ACID
     Indication: ANTISYNTHETASE SYNDROME
     Dosage: UNK,UP TITRATING DOSE
     Route: 065
  3. PREDNISOLONE. [Suspect]
     Active Substance: PREDNISOLONE
     Indication: HAEMOPHAGOCYTIC LYMPHOHISTIOCYTOSIS
     Dosage: 60 MILLIGRAM
     Route: 048
  4. CYCLOSPORINE. [Suspect]
     Active Substance: CYCLOSPORINE
     Indication: HAEMOPHAGOCYTIC LYMPHOHISTIOCYTOSIS
     Dosage: 2 MILLIGRAM/KILOGRAM, QD
     Route: 065

REACTIONS (4)
  - Off label use [Unknown]
  - Diabetic ketoacidosis [Unknown]
  - Hyperglycaemia [Unknown]
  - Toxicity to various agents [Unknown]
